FAERS Safety Report 25796914 (Version 1)
Quarter: 2025Q3

REPORT INFORMATION
  Report Type: Spontaneous
  Country: JP (occurrence: JP)
  Receive Date: 20250912
  Receipt Date: 20250912
  Transmission Date: 20251021
  Serious: Yes (Other)
  Sender: FERRING
  Company Number: JP-ferring-EVA202501415FERRINGPH

PATIENT

DRUGS (1)
  1. DESMOPRESSIN ACETATE [Suspect]
     Active Substance: DESMOPRESSIN ACETATE
     Indication: Adrenal insufficiency
     Dosage: 60 UG, 2 TIMES DAILY (EVERY 12 HOURS)
     Route: 048

REACTIONS (6)
  - Enterocolitis [Unknown]
  - Sepsis [Unknown]
  - Dehydration [Unknown]
  - Emphysema [Unknown]
  - Dysphagia [Unknown]
  - Product use in unapproved indication [Unknown]
